FAERS Safety Report 10797232 (Version 2)
Quarter: 2015Q3

REPORT INFORMATION
  Report Type: Spontaneous
  Country: US (occurrence: US)
  Receive Date: 20150216
  Receipt Date: 20150720
  Transmission Date: 20151125
  Serious: No
  Sender: FDA-Public Use
  Company Number: US-009507513-1502USA003602

PATIENT

DRUGS (1)
  1. GRASTEK [Suspect]
     Active Substance: PHLEUM PRATENSE POLLEN
     Route: 048

REACTIONS (3)
  - Tooth discolouration [Recovered/Resolved]
  - Throat irritation [Recovered/Resolved]
  - Sinus congestion [Recovered/Resolved]
